FAERS Safety Report 6065387-5 (Version None)
Quarter: 2009Q1

REPORT INFORMATION
  Report Type: 
  Country: None (occurrence: None)
  Receive Date: 20090130
  Receipt Date: 20090117
  Transmission Date: 20090719
  Serious: Yes (Hospitalization)
  Sender: FDA-Public Use
  Company Number: 005454

PATIENT
  Age: 84 Year
  Sex: Male

DRUGS (4)
  1. PLETAL [Suspect]
     Dosage: 100 MG, BID; ORAL
     Route: 048
     Dates: start: 20081206, end: 20081227
  2. FLOMOX (CEFCAPENE PIVOXIL HYDROCHLORIDE) [Concomitant]
  3. LASIX [Concomitant]
  4. ALDACTONE [Concomitant]

REACTIONS (7)
  - BLADDER DISORDER [None]
  - BRAIN NATRIURETIC PEPTIDE INCREASED [None]
  - CARDIAC FAILURE [None]
  - FIBRIN D DIMER INCREASED [None]
  - OEDEMA [None]
  - PAIN IN EXTREMITY [None]
  - PLEURAL EFFUSION [None]
